FAERS Safety Report 4852180-1 (Version None)
Quarter: 2005Q4

REPORT INFORMATION
  Report Type: 
  Country: None (occurrence: None)
  Receive Date: 20051213
  Receipt Date: 20051118
  Transmission Date: 20060501
  Serious: Yes (Hospitalization)
  Sender: FDA-Public Use
  Company Number: 8390

PATIENT
  Age: 4 Year
  Sex: Female
  Weight: 16.3 kg

DRUGS (5)
  1. 506U78 [Suspect]
     Dosage: 400MGM2 CYCLIC
     Route: 042
     Dates: start: 20050413
  2. THIOGUANINE [Suspect]
     Dosage: 60MGM2 PER DAY
     Route: 048
  3. CYCLOPHOSPHAMIDE [Suspect]
     Route: 042
  4. CYTARABINE [Suspect]
     Dosage: 75MGM2 CYCLIC
     Route: 058
  5. METHOTREXATE [Suspect]

REACTIONS (18)
  - ABDOMINAL DISTENSION [None]
  - ABDOMINAL PAIN [None]
  - ALANINE AMINOTRANSFERASE INCREASED [None]
  - ANOREXIA [None]
  - ASCITES [None]
  - ASPARTATE AMINOTRANSFERASE INCREASED [None]
  - BLOOD BILIRUBIN INCREASED [None]
  - COAGULOPATHY [None]
  - COUGH [None]
  - HEPATIC FAILURE [None]
  - HYPOALBUMINAEMIA [None]
  - HYPOKALAEMIA [None]
  - HYPOPROTEINAEMIA [None]
  - NEUTROPENIA [None]
  - PYREXIA [None]
  - RHINORRHOEA [None]
  - URINE OUTPUT DECREASED [None]
  - VENOOCCLUSIVE DISEASE [None]
